FAERS Safety Report 14031953 (Version 1)
Quarter: 2017Q4

REPORT INFORMATION
  Report Type: Spontaneous
  Country: US (occurrence: US)
  Receive Date: 20171002
  Receipt Date: 20171002
  Transmission Date: 20180321
  Serious: Yes (Other)
  Sender: FDA-Public Use
  Company Number: US-ENDO PHARMACEUTICALS INC-2017-005227

PATIENT
  Age: 59 Year
  Sex: Male

DRUGS (1)
  1. AVEED [Suspect]
     Active Substance: TESTOSTERONE UNDECANOATE
     Indication: TESTICULAR FAILURE
     Dosage: 750 MG, ONCE EVERY 10WK
     Route: 030
     Dates: start: 20170621

REACTIONS (1)
  - Orchitis [Unknown]

NARRATIVE: CASE EVENT DATE: 20170922
